FAERS Safety Report 11218305 (Version 1)
Quarter: 2015Q2

REPORT INFORMATION
  Report Type: Spontaneous
  Country: US (occurrence: US)
  Receive Date: 20150625
  Receipt Date: 20150625
  Transmission Date: 20150821
  Serious: Yes (Other)
  Sender: FDA-Public Use
  Company Number: US-ASTRAZENECA-2015SE61019

PATIENT
  Age: 21436 Day
  Sex: Female
  Weight: 131.5 kg

DRUGS (10)
  1. NOVALOG [Concomitant]
     Dates: start: 201201
  2. GLUCOPHAGE [Concomitant]
     Active Substance: METFORMIN HYDROCHLORIDE
  3. NPHHUMIN INSULIN [Concomitant]
  4. LANTUS [Concomitant]
     Active Substance: INSULIN GLARGINE
     Dates: start: 201012
  5. VYTORIN [Concomitant]
     Active Substance: EZETIMIBE\SIMVASTATIN
  6. BYETTA [Suspect]
     Active Substance: EXENATIDE
     Route: 065
  7. GLIPIZIDE. [Concomitant]
     Active Substance: GLIPIZIDE
  8. LEVENIR [Concomitant]
  9. REDUCE STOMACH ACID MEDICATION [Concomitant]
  10. JANUVIA [Concomitant]
     Active Substance: SITAGLIPTIN PHOSPHATE
     Dates: start: 201306

REACTIONS (5)
  - Hypothyroidism [Unknown]
  - Medullary thyroid cancer [Unknown]
  - Thyroid neoplasm [Unknown]
  - Drug hypersensitivity [Unknown]
  - Goitre [Unknown]

NARRATIVE: CASE EVENT DATE: 20150528
